FAERS Safety Report 8552213-5 (Version None)
Quarter: 2012Q3

REPORT INFORMATION
  Report Type: 
  Country: None (occurrence: None)
  Receive Date: 20120731
  Receipt Date: 20120723
  Transmission Date: 20120928
  Serious: No
  Sender: FDA-Public Use
  Company Number: US-BIOGENIDEC-2012BI026878

PATIENT
  Age: 52 Year
  Sex: Male

DRUGS (1)
  1. AVONEX [Suspect]
     Indication: MULTIPLE SCLEROSIS
     Route: 030
     Dates: start: 20110114

REACTIONS (7)
  - PARALYSIS [None]
  - DIZZINESS [None]
  - COORDINATION ABNORMAL [None]
  - FEELING HOT [None]
  - HEADACHE [None]
  - APHASIA [None]
  - ASTHENIA [None]
